FAERS Safety Report 11624298 (Version 1)
Quarter: 2015Q4

REPORT INFORMATION
  Report Type: Spontaneous
  Country: US (occurrence: US)
  Receive Date: 20151013
  Receipt Date: 20151013
  Transmission Date: 20160304
  Serious: No
  Sender: FDA-Public Use
  Company Number: US-TEVA-577476USA

PATIENT
  Sex: Male
  Weight: 86.26 kg

DRUGS (2)
  1. ACITRETIN. [Suspect]
     Active Substance: ACITRETIN
     Route: 065
  2. ACITRETIN. [Suspect]
     Active Substance: ACITRETIN
     Indication: PSORIASIS
     Route: 065

REACTIONS (2)
  - Faeces discoloured [Recovering/Resolving]
  - Hair colour changes [Unknown]
